FAERS Safety Report 12395222 (Version 2)
Quarter: 2016Q2

REPORT INFORMATION
  Report Type: Spontaneous
  Country: US (occurrence: US)
  Receive Date: 20160523
  Receipt Date: 20160526
  Transmission Date: 20160815
  Serious: Yes (Other)
  Sender: FDA-Public Use
  Company Number: US-BAYER-2016-094961

PATIENT
  Age: 68 Year
  Sex: Male
  Weight: 102.4 kg

DRUGS (14)
  1. LYRICA [Concomitant]
     Active Substance: PREGABALIN
     Indication: FIBROMYALGIA
     Dosage: 75 MG, BID
  2. LYRICA [Concomitant]
     Active Substance: PREGABALIN
     Indication: INTERVERTEBRAL DISC PROTRUSION
  3. HYDROCODONE [Concomitant]
     Active Substance: HYDROCODONE
     Indication: PAIN
     Dosage: 1 DF, QD
     Dates: start: 2008, end: 201506
  4. MELOXICAM. [Concomitant]
     Active Substance: MELOXICAM
     Indication: PAIN
     Dosage: 15 MG, QD
     Route: 048
     Dates: start: 20160105, end: 20160408
  5. TAMSULOSIN HYDROCHLORIDE. [Concomitant]
     Active Substance: TAMSULOSIN HYDROCHLORIDE
     Indication: BENIGN PROSTATIC HYPERPLASIA
     Dosage: 0.4 MG, TWICE DAILY
     Route: 048
     Dates: start: 2006
  6. ALEVE [Suspect]
     Active Substance: NAPROXEN SODIUM
     Indication: PAIN
     Dosage: 1000 MG, DAILY
     Dates: start: 2001, end: 201511
  7. PERCOCET [Concomitant]
     Active Substance: ACETAMINOPHEN\OXYCODONE HYDROCHLORIDE
     Indication: PAIN
     Dosage: 10 MG, ONCE FOR BREAKTHROUGH PAIN
     Dates: start: 20160505, end: 20160505
  8. LEVOTHYROXINE. [Concomitant]
     Active Substance: LEVOTHYROXINE
     Indication: THYROID DISORDER
     Dosage: 0.025 MG, QD
     Route: 048
     Dates: start: 2010
  9. OXYCONTIN [Concomitant]
     Active Substance: OXYCODONE HYDROCHLORIDE
     Indication: PAIN
     Dosage: 1 DF, QD
     Dates: start: 201604
  10. LYRICA [Concomitant]
     Active Substance: PREGABALIN
     Indication: SCIATICA
  11. PERCOCET [Concomitant]
     Active Substance: ACETAMINOPHEN\OXYCODONE HYDROCHLORIDE
     Indication: PAIN
     Dosage: 5 MG, FOUR TIMES DAILY
     Route: 048
     Dates: start: 20160105, end: 201603
  12. MORPHINE [Concomitant]
     Active Substance: MORPHINE
     Indication: PAIN
     Dosage: 90 MG, QD
     Dates: start: 2001, end: 201506
  13. BAYER GENUINE ASPIRIN [Suspect]
     Active Substance: ASPIRIN
     Indication: PROPHYLAXIS
     Dosage: 325 MG, ONCE DAILY
     Route: 048
     Dates: start: 2001
  14. LEXAPRO [Concomitant]
     Active Substance: ESCITALOPRAM OXALATE
     Indication: ANTIDEPRESSANT THERAPY
     Dosage: 20 MG, QD
     Route: 048
     Dates: start: 2014

REACTIONS (11)
  - Diverticulitis [Not Recovered/Not Resolved]
  - Gastric ulcer [Not Recovered/Not Resolved]
  - Product use issue [None]
  - Gastric ulcer haemorrhage [None]
  - Gastric disorder [Not Recovered/Not Resolved]
  - Labelled drug-drug interaction medication error [None]
  - Drug administration error [None]
  - Abdominal pain upper [None]
  - Product use issue [None]
  - Oesophageal ulcer [None]
  - Gastric ulcer [None]

NARRATIVE: CASE EVENT DATE: 2001
